FAERS Safety Report 9796369 (Version 1)
Quarter: 2014Q1

REPORT INFORMATION
  Report Type: Spontaneous
  Country: US (occurrence: US)
  Receive Date: 20140103
  Receipt Date: 20140103
  Transmission Date: 20141002
  Serious: No
  Sender: FDA-Public Use
  Company Number: US-BAYER-2014-000649

PATIENT
  Sex: Female

DRUGS (3)
  1. ALEVE CAPLET [Suspect]
     Indication: MIGRAINE
  2. EXTRA STRENGTH TYLENOL [Concomitant]
     Indication: MIGRAINE
  3. EXCEDRIN MIGRAINE [Concomitant]
     Indication: MIGRAINE

REACTIONS (2)
  - Extra dose administered [None]
  - Off label use [None]
